FAERS Safety Report 20303851 (Version 1)
Quarter: 2022Q1

REPORT INFORMATION
  Report Type: Spontaneous
  Country: CA (occurrence: None)
  Receive Date: 20220106
  Receipt Date: 20220106
  Transmission Date: 20220423
  Serious: Yes (Other)
  Sender: FDA-Public Use
  Company Number: CA-PFIZER INC-202101835259

PATIENT
  Age: 39 Year
  Sex: Male

DRUGS (4)
  1. METHOTREXATE [Suspect]
     Active Substance: METHOTREXATE
     Indication: Product used for unknown indication
     Route: 065
     Dates: start: 2016
  2. METHOTREXATE [Suspect]
     Active Substance: METHOTREXATE
     Route: 065
     Dates: start: 201902
  3. PREDNISONE [Concomitant]
     Active Substance: PREDNISONE
     Route: 065
  4. MODERNA COVID-19 VACCINE [Concomitant]
     Active Substance: ELASOMERAN
     Indication: COVID-19 immunisation
     Dosage: DOSE 2, SINGLE
     Route: 065

REACTIONS (15)
  - Dacryocystorhinostomy [Unknown]
  - Fistula [Not Recovered/Not Resolved]
  - Drug ineffective [Unknown]
  - Sinusitis [Unknown]
  - Arthritis [Unknown]
  - Purpura [Unknown]
  - Nose deformity [Not Recovered/Not Resolved]
  - Scleral disorder [Not Recovered/Not Resolved]
  - Nasal inflammation [Not Recovered/Not Resolved]
  - Blood urine [Unknown]
  - Protein urine present [Unknown]
  - Malaise [Unknown]
  - Condition aggravated [Unknown]
  - Blood creatinine increased [Unknown]
  - Glomerular filtration rate increased [Unknown]

NARRATIVE: CASE EVENT DATE: 20190901
